FAERS Safety Report 6364250-X (Version None)
Quarter: 2009Q3

REPORT INFORMATION
  Report Type: 
  Country: None (occurrence: None)
  Receive Date: 20090919
  Receipt Date: 20090715
  Transmission Date: 20100115
  Serious: No
  Sender: FDA-Public Use
  Company Number: US-ABBOTT-09P-163-0585840-00

PATIENT
  Sex: Female

DRUGS (5)
  1. HUMIRA [Suspect]
     Indication: PSORIASIS
     Dosage: 80 MILLIGRAM 1ST DOSE
     Dates: start: 20090609, end: 20090609
  2. HUMIRA [Suspect]
     Dates: start: 20090616, end: 20090616
  3. HUMIRA [Suspect]
     Route: 058
     Dates: start: 20090623
  4. JANUVIA [Concomitant]
     Indication: DIABETES MELLITUS
  5. METFORMIN HCL [Concomitant]
     Indication: DIABETES MELLITUS

REACTIONS (1)
  - INJECTION SITE PAIN [None]
